FAERS Safety Report 9734184 (Version 1)
Quarter: 2013Q4

REPORT INFORMATION
  Report Type: Spontaneous
  Country: IT (occurrence: DE)
  Receive Date: 20131205
  Receipt Date: 20131205
  Transmission Date: 20140711
  Serious: Yes (Other)
  Sender: FDA-Public Use
  Company Number: IT-WATSON-2013-21637

PATIENT
  Sex: Male
  Weight: 73 kg

DRUGS (3)
  1. RAPAFLO (WATSON LABORATORIES) [Suspect]
     Indication: BENIGN PROSTATIC HYPERPLASIA
     Dosage: 4 MG, DAILY
     Route: 048
     Dates: start: 20130927, end: 20131021
  2. RAPAFLO (WATSON LABORATORIES) [Suspect]
     Indication: MICTURITION DISORDER
  3. TAMSULOSIN (UNKNOWN) [Suspect]
     Indication: PRODUCT USED FOR UNKNOWN INDICATION
     Dosage: UNK, UNKNOWN
     Route: 048

REACTIONS (3)
  - Retinal telangiectasia [Recovering/Resolving]
  - Retinal aneurysm [Recovering/Resolving]
  - Eye haemorrhage [Unknown]
